FAERS Safety Report 7943108-6 (Version None)
Quarter: 2011Q4

REPORT INFORMATION
  Report Type: 
  Country: None (occurrence: None)
  Receive Date: 20111128
  Receipt Date: 20111115
  Transmission Date: 20120403
  Serious: Yes (Hospitalization)
  Sender: FDA-Public Use
  Company Number: PHHO2011AU019305

PATIENT
  Sex: Female
  Weight: 80 kg

DRUGS (3)
  1. AMLODIPINE [Concomitant]
  2. NO TREATMENT RECEIVED [Suspect]
     Indication: RENAL TRANSPLANT
  3. MYFORTIC [Suspect]
     Indication: RENAL TRANSPLANT
     Dosage: UNK
     Route: 048

REACTIONS (1)
  - DIARRHOEA HAEMORRHAGIC [None]
